FAERS Safety Report 9210816 (Version 2)
Quarter: 2013Q2

REPORT INFORMATION
  Report Type: Spontaneous
  Country: US (occurrence: US)
  Receive Date: 20130404
  Receipt Date: 20130628
  Transmission Date: 20140414
  Serious: Yes (Hospitalization, Other)
  Sender: FDA-Public Use
  Company Number: US-BAXTER-2013BAX009346

PATIENT
  Sex: Male

DRUGS (1)
  1. DIANEAL LOW CALCIUM [Suspect]
     Indication: PERITONEAL DIALYSIS
     Route: 033

REACTIONS (7)
  - Hyperkeratosis [Unknown]
  - Procedural complication [Unknown]
  - Osteomyelitis [Recovering/Resolving]
  - Condition aggravated [Unknown]
  - Impaired healing [Unknown]
  - Abasia [Unknown]
  - Post procedural infection [Recovering/Resolving]
